FAERS Safety Report 8233446-4 (Version None)
Quarter: 2012Q1

REPORT INFORMATION
  Report Type: 
  Country: None (occurrence: None)
  Receive Date: 20120326
  Receipt Date: 20120314
  Transmission Date: 20120608
  Serious: Yes (Other)
  Sender: FDA-Public Use
  Company Number: US-ELI_LILLY_AND_COMPANY-US201202004813

PATIENT
  Sex: Female

DRUGS (8)
  1. ASPIRIN [Concomitant]
  2. FORTEO [Suspect]
     Dosage: 20 UG, QD
     Route: 065
  3. ROFLUMILAST [Concomitant]
  4. CARBIDOPA [Concomitant]
  5. FUROSEMIDE [Concomitant]
  6. FORTEO [Suspect]
     Indication: OSTEOPOROSIS
     Dosage: 20 UG, QD
     Route: 065
     Dates: start: 20111001
  7. FORTEO [Suspect]
     Dosage: 20 UG, QD
     Route: 065
  8. LYRICA [Concomitant]

REACTIONS (5)
  - PELVIC FRACTURE [None]
  - FALL [None]
  - EYE DISORDER [None]
  - ARTHRALGIA [None]
  - VISUAL IMPAIRMENT [None]
